FAERS Safety Report 24970808 (Version 2)
Quarter: 2025Q1

REPORT INFORMATION
  Report Type: Report from Study
  Country: KR (occurrence: KR)
  Receive Date: 20250214
  Receipt Date: 20250327
  Transmission Date: 20250409
  Serious: Yes (Hospitalization)
  Sender: AKEBIA THERAPEUTICS
  Company Number: KR-KERYX BIOPHARMACEUTICALS INC.-KR-AKEB-25-000073

PATIENT
  Age: 68 Year
  Sex: Male
  Weight: 92.7 kg

DRUGS (9)
  1. FERRIC CITRATE ANHYDROUS [Suspect]
     Active Substance: FERRIC CITRATE ANHYDROUS
     Indication: Hyperphosphataemia
     Dosage: 4000 MILLIGRAM, TID
     Route: 048
     Dates: start: 20240530, end: 20240723
  2. RENALMIN [Concomitant]
     Indication: Product used for unknown indication
     Route: 065
     Dates: start: 20171118
  3. HYDROXYZINE HYDROCHLORIDE [Concomitant]
     Active Substance: HYDROXYZINE HYDROCHLORIDE
     Indication: Product used for unknown indication
     Route: 065
     Dates: start: 20230704
  4. ERDOSTEINE [Concomitant]
     Active Substance: ERDOSTEINE
     Indication: Product used for unknown indication
     Route: 065
     Dates: start: 20240525
  5. HARNAL [Concomitant]
     Active Substance: TAMSULOSIN HYDROCHLORIDE
     Indication: Product used for unknown indication
     Route: 065
     Dates: start: 20171118
  6. ASPIRIN [Concomitant]
     Active Substance: ASPIRIN
     Indication: Product used for unknown indication
     Route: 065
     Dates: start: 20180224
  7. LEVODROPROPIZINE [Concomitant]
     Active Substance: LEVODROPROPIZINE
     Indication: Product used for unknown indication
     Route: 065
     Dates: start: 20240525
  8. VENOSTIN [Concomitant]
     Indication: Product used for unknown indication
     Route: 065
     Dates: start: 20171205
  9. LICA [Concomitant]
     Indication: Product used for unknown indication
     Route: 065
     Dates: start: 20180603

REACTIONS (1)
  - Chest pain [Recovered/Resolved]

NARRATIVE: CASE EVENT DATE: 20240722
